FAERS Safety Report 7476683-9 (Version None)
Quarter: 2011Q2

REPORT INFORMATION
  Report Type: 
  Country: None (occurrence: None)
  Receive Date: 20110512
  Receipt Date: 20110502
  Transmission Date: 20111010
  Serious: Yes (Hospitalization)
  Sender: FDA-Public Use
  Company Number: PHHY2011BR38684

PATIENT
  Sex: Male

DRUGS (2)
  1. EXELON [Suspect]
     Dosage: 18MG/10CM2
     Route: 062
  2. EXELON [Suspect]
     Dosage: 9MG/5CM2
     Route: 062

REACTIONS (6)
  - LUNG DISORDER [None]
  - PARKINSON'S DISEASE [None]
  - MUSCULAR WEAKNESS [None]
  - PNEUMONIA [None]
  - AMNESIA [None]
  - MEMORY IMPAIRMENT [None]
